FAERS Safety Report 11711594 (Version 1)
Quarter: 2015Q4

REPORT INFORMATION
  Report Type: Spontaneous
  Country: US (occurrence: US)
  Receive Date: 20151104
  Receipt Date: 20151104
  Transmission Date: 20160304
  Serious: No
  Sender: FDA-Public Use
  Company Number: US-ELI_LILLY_AND_COMPANY-US201106001067

PATIENT
  Age: 79 Year
  Sex: Female

DRUGS (1)
  1. FORTEO [Suspect]
     Active Substance: TERIPARATIDE
     Indication: FOOT FRACTURE
     Dosage: 20 UG, QD
     Dates: start: 201104

REACTIONS (2)
  - Bone pain [Unknown]
  - Off label use [Unknown]

NARRATIVE: CASE EVENT DATE: 201104
